FAERS Safety Report 8270613-8 (Version None)
Quarter: 2012Q2

REPORT INFORMATION
  Report Type: 
  Country: None (occurrence: None)
  Receive Date: 20120410
  Receipt Date: 20120405
  Transmission Date: 20120825
  Serious: Yes (Other)
  Sender: FDA-Public Use
  Company Number: US-B.I. PHARMACEUTICALS,INC./RIDGEFIELD-2012-BP-06483PF

PATIENT
  Sex: Male
  Weight: 126.1 kg

DRUGS (10)
  1. KLONOPIN [Concomitant]
     Indication: DEPRESSION
  2. MORPHINE [Concomitant]
     Indication: PAIN
     Route: 048
  3. LAMICTAL [Concomitant]
     Indication: DEPRESSION
  4. CYMBALTA [Concomitant]
     Indication: DEPRESSION
  5. CHANTIX [Suspect]
     Indication: SMOKING CESSATION THERAPY
     Dosage: 0.5 MG
     Route: 048
     Dates: start: 20111101, end: 20120301
  6. LYRICA [Concomitant]
     Indication: DIABETIC NEUROPATHY
  7. SPIRIVA [Suspect]
     Indication: EMPHYSEMA
  8. OXYCODONE HCL [Concomitant]
     Indication: PAIN
  9. SPIRIVA [Suspect]
     Indication: CHRONIC OBSTRUCTIVE PULMONARY DISEASE
  10. RISPERIDONE [Concomitant]
     Indication: DEPRESSION

REACTIONS (11)
  - THINKING ABNORMAL [None]
  - CEREBROVASCULAR ACCIDENT [None]
  - OEDEMA PERIPHERAL [None]
  - ANXIETY [None]
  - FLUID RETENTION [None]
  - MYOCARDIAL INFARCTION [None]
  - DRUG INEFFECTIVE [None]
  - GASTROOESOPHAGEAL REFLUX DISEASE [None]
  - DEPRESSION [None]
  - BLOOD GLUCOSE INCREASED [None]
  - ABNORMAL DREAMS [None]
